FAERS Safety Report 5253233-9 (Version None)
Quarter: 2007Q1

REPORT INFORMATION
  Report Type: 
  Country: None (occurrence: None)
  Receive Date: 20061201
  Receipt Date: 20060801
  Transmission Date: 20070707
  Serious: No
  Sender: FDA-Public Use
  Company Number: 2006PV018649

PATIENT
  Age: 45 Year
  Sex: Female
  Weight: 78.9259 kg

DRUGS (1)
  1. BYETTA [Suspect]
     Indication: WEIGHT CONTROL
     Dosage: 5 MCG;BID;SC
     Route: 058
     Dates: start: 20060731

REACTIONS (7)
  - BLOOD GLUCOSE INCREASED [None]
  - DRUG INEFFECTIVE FOR UNAPPROVED INDICATION [None]
  - FOOD CRAVING [None]
  - INJECTION SITE BRUISING [None]
  - INJECTION SITE HAEMORRHAGE [None]
  - INJECTION SITE PAIN [None]
  - WEIGHT INCREASED [None]
